FAERS Safety Report 15012070 (Version 3)
Quarter: 2018Q3

REPORT INFORMATION
  Report Type: Spontaneous
  Country: US (occurrence: US)
  Receive Date: 20180614
  Receipt Date: 20180705
  Transmission Date: 20181010
  Serious: Yes (Hospitalization, Disabling, Other)
  Sender: FDA-Public Use
  Company Number: US-OTSUKA-2018_015494

PATIENT
  Sex: Female

DRUGS (4)
  1. ABILIFY [Suspect]
     Active Substance: ARIPIPRAZOLE
     Indication: MAJOR DEPRESSION
     Dosage: 5 MG, QD
     Route: 065
     Dates: start: 20090123
  2. ABILIFY [Suspect]
     Active Substance: ARIPIPRAZOLE
     Indication: BIPOLAR DISORDER
     Dosage: 10 MG, QD
     Route: 065
  3. ABILIFY [Suspect]
     Active Substance: ARIPIPRAZOLE
     Indication: ANXIETY
     Dosage: 30 MG, QD
     Route: 065
     Dates: end: 201605
  4. ABILIFY [Suspect]
     Active Substance: ARIPIPRAZOLE
     Indication: POST-TRAUMATIC STRESS DISORDER
     Dosage: UNK
     Route: 065
     Dates: end: 201607

REACTIONS (18)
  - Legal problem [Unknown]
  - Suicide attempt [Not Recovered/Not Resolved]
  - Mental impairment [Unknown]
  - Anxiety [Unknown]
  - Gambling disorder [Not Recovered/Not Resolved]
  - Mental disorder [Unknown]
  - Anhedonia [Unknown]
  - Emotional distress [Unknown]
  - Fear [Unknown]
  - Bankruptcy [Unknown]
  - Pain [Unknown]
  - Economic problem [Unknown]
  - Suicidal ideation [Not Recovered/Not Resolved]
  - Social problem [Unknown]
  - Disability [Unknown]
  - Injury [Unknown]
  - Compulsive shopping [Not Recovered/Not Resolved]
  - Product use in unapproved indication [Unknown]

NARRATIVE: CASE EVENT DATE: 20090123
